FAERS Safety Report 21119183 (Version 1)
Quarter: 2022Q3

REPORT INFORMATION
  Report Type: Spontaneous
  Country: US (occurrence: None)
  Receive Date: 20220721
  Receipt Date: 20220721
  Transmission Date: 20221027
  Serious: Yes (Other)
  Sender: FDA-Public Use
  Company Number: None

PATIENT
  Age: 38 Year
  Sex: Female

DRUGS (1)
  1. REMDESIVIR [Suspect]
     Active Substance: REMDESIVIR
     Dates: start: 20220124, end: 20220125

REACTIONS (4)
  - Infusion related reaction [None]
  - Hypertension [None]
  - Tachycardia [None]
  - Cardiac flutter [None]

NARRATIVE: CASE EVENT DATE: 20220125
